FAERS Safety Report 11776144 (Version 2)
Quarter: 2017Q2

REPORT INFORMATION
  Report Type: Spontaneous
  Country: US (occurrence: US)
  Receive Date: 20151125
  Receipt Date: 20170406
  Transmission Date: 20170829
  Serious: No
  Sender: FDA-Public Use
  Company Number: US-JNJFOC-20151104751

PATIENT
  Sex: Male

DRUGS (6)
  1. RISPERDAL [Suspect]
     Active Substance: RISPERIDONE
     Indication: OBSESSIVE-COMPULSIVE DISORDER
     Dosage: 0.50 MG; 1.00 MG
     Route: 048
     Dates: start: 2004, end: 2008
  2. RISPERDAL [Suspect]
     Active Substance: RISPERIDONE
     Indication: ATTENTION DEFICIT/HYPERACTIVITY DISORDER
     Dosage: 0.50 MG; 1.00 MG
     Route: 048
     Dates: start: 2004, end: 2008
  3. LITHIUM. [Suspect]
     Active Substance: LITHIUM
     Indication: IMPULSIVE BEHAVIOUR
     Route: 065
     Dates: start: 2004
  4. RISPERDAL [Suspect]
     Active Substance: RISPERIDONE
     Indication: BIPOLAR DISORDER
     Dosage: 0.50 MG; 1.00 MG
     Route: 048
     Dates: start: 2004, end: 2008
  5. LITHIUM. [Suspect]
     Active Substance: LITHIUM
     Indication: DRUG THERAPY
     Route: 065
     Dates: start: 2004
  6. ZYPREXA [Suspect]
     Active Substance: OLANZAPINE
     Indication: PRODUCT USED FOR UNKNOWN INDICATION
     Route: 065
     Dates: end: 2004

REACTIONS (3)
  - Blood prolactin increased [Unknown]
  - Gynaecomastia [Unknown]
  - Abnormal weight gain [Unknown]

NARRATIVE: CASE EVENT DATE: 2004
